FAERS Safety Report 16833407 (Version 1)
Quarter: 2019Q3

REPORT INFORMATION
  Report Type: Spontaneous
  Country: US (occurrence: US)
  Receive Date: 20190920
  Receipt Date: 20190920
  Transmission Date: 20191005
  Serious: No
  Sender: FDA-Public Use
  Company Number: US-JNJFOC-20190924635

PATIENT
  Age: 80 Year
  Sex: Male

DRUGS (2)
  1. IBRUTINIB [Suspect]
     Active Substance: IBRUTINIB
     Indication: CHRONIC LYMPHOCYTIC LEUKAEMIA
     Dosage: 420 MG, QD
     Route: 048
  2. IBRUTINIB [Suspect]
     Active Substance: IBRUTINIB
     Dosage: 280 MG, QD
     Route: 048

REACTIONS (1)
  - Rash erythematous [Recovered/Resolved]
